FAERS Safety Report 16458341 (Version 1)
Quarter: 2019Q2

REPORT INFORMATION
  Report Type: Report from Study
  Country: SD (occurrence: SD)
  Receive Date: 20190620
  Receipt Date: 20190620
  Transmission Date: 20190711
  Serious: Yes (Death)
  Sender: FDA-Public Use
  Company Number: SD-CASPER PHARMA LLC-2019CAS000292

PATIENT
  Age: 7 Year
  Sex: Female

DRUGS (1)
  1. PENICILLIN G BENZATHINE [Suspect]
     Active Substance: PENICILLIN G BENZATHINE
     Indication: RHEUMATIC HEART DISEASE
     Dosage: UNK
     Route: 030

REACTIONS (1)
  - Death [Fatal]
